FAERS Safety Report 5141191-7 (Version None)
Quarter: 2006Q4

REPORT INFORMATION
  Report Type: 
  Country: None (occurrence: None)
  Receive Date: 20061101
  Receipt Date: 20061020
  Transmission Date: 20070319
  Serious: Yes (Hospitalization)
  Sender: FDA-Public Use
  Company Number: PHEH2006US13148

PATIENT
  Sex: Female

DRUGS (1)
  1. SANDOSTATIN [Suspect]
     Indication: VARICES OESOPHAGEAL
     Dosage: 50 UG/HR, ONCE/SINGLE
     Route: 042
     Dates: start: 20060701, end: 20060701

REACTIONS (3)
  - INJECTION SITE REACTION [None]
  - INJECTION SITE VESICLES [None]
  - SKIN EXFOLIATION [None]
